FAERS Safety Report 6749726-5 (Version None)
Quarter: 2010Q2

REPORT INFORMATION
  Report Type: 
  Country: None (occurrence: None)
  Receive Date: 20100601
  Receipt Date: 20100527
  Transmission Date: 20101027
  Serious: Yes (Hospitalization)
  Sender: FDA-Public Use
  Company Number: TH-BAYER-201021623GPV

PATIENT
  Age: 49 Year
  Sex: Male
  Weight: 64 kg

DRUGS (4)
  1. NEXAVAR [Suspect]
     Indication: HEPATIC NEOPLASM MALIGNANT
     Route: 048
     Dates: start: 20100305, end: 20100318
  2. LEGALON [Concomitant]
     Route: 048
     Dates: start: 20100401
  3. LAMIVUDINE [Concomitant]
     Route: 048
     Dates: start: 20100401
  4. TRAMAL [Concomitant]
     Indication: PAIN
     Route: 048
     Dates: start: 20100402

REACTIONS (2)
  - ABSCESS DRAINAGE [None]
  - ANAL ABSCESS [None]
